FAERS Safety Report 5845103-X (Version None)
Quarter: 2008Q3

REPORT INFORMATION
  Report Type: 
  Country: None (occurrence: None)
  Receive Date: 20080813
  Receipt Date: 20080813
  Transmission Date: 20090109
  Serious: Yes (Other)
  Sender: FDA-Public Use
  Company Number: None

PATIENT
  Age: 56 Year
  Sex: Female
  Weight: 68.0396 kg

DRUGS (1)
  1. EFFEXOR XR [Suspect]
     Indication: MENOPAUSAL SYMPTOMS
     Dosage: 37.5 MG ONCE DAILY PO
     Route: 048
     Dates: start: 20080701, end: 20080811

REACTIONS (2)
  - EMOTIONAL DISTRESS [None]
  - NIGHTMARE [None]
